APPROVED DRUG PRODUCT: EPANED
Active Ingredient: ENALAPRIL MALEATE
Strength: 1MG/ML
Dosage Form/Route: SOLUTION;ORAL
Application: N208686 | Product #001 | TE Code: AB
Applicant: AZURITY PHARMACEUTICALS INC
Approved: Sep 20, 2016 | RLD: Yes | RS: Yes | Type: RX

PATENTS:
Patent 9808442 | Expires: Mar 25, 2036
Patent 9808442 | Expires: Mar 25, 2036
Patent 9808442 | Expires: Mar 25, 2036
Patent 10154987 | Expires: Mar 25, 2036
Patent 10154987 | Expires: Mar 25, 2036
Patent 10154987 | Expires: Mar 25, 2036
Patent 10154987 | Expires: Mar 25, 2036
Patent 9808442 | Expires: Mar 25, 2036
Patent 9808442 | Expires: Mar 25, 2036
Patent 10154987 | Expires: Mar 25, 2036
Patent 11040023 | Expires: Mar 25, 2036
Patent 9669008 | Expires: Mar 25, 2036
Patent 10772868 | Expires: Mar 25, 2036
Patent 10786482 | Expires: Mar 25, 2036
Patent 10039745 | Expires: Mar 25, 2036
Patent 11173141 | Expires: Mar 25, 2036
Patent 11141405 | Expires: Mar 25, 2036